FAERS Safety Report 8290404-1 (Version None)
Quarter: 2012Q2

REPORT INFORMATION
  Report Type: 
  Country: None (occurrence: None)
  Receive Date: 20120417
  Receipt Date: 20120410
  Transmission Date: 20120825
  Serious: Yes (Hospitalization)
  Sender: FDA-Public Use
  Company Number: IT-ABBOTT-12P-083-0923700-00

PATIENT
  Sex: Female

DRUGS (4)
  1. CLARITHROMYCIN [Suspect]
     Indication: SUICIDE ATTEMPT
     Route: 048
     Dates: start: 20111009, end: 20111009
  2. IBUPROFEN [Suspect]
     Indication: SUICIDE ATTEMPT
     Route: 048
     Dates: start: 20111009, end: 20111009
  3. ACETAMINOPHEN [Suspect]
     Indication: SUICIDE ATTEMPT
     Dates: start: 20111009, end: 20111009
  4. BISACODILE [Suspect]
     Indication: SUICIDE ATTEMPT
     Route: 048
     Dates: start: 20111009, end: 20111009

REACTIONS (3)
  - ABDOMINAL PAIN UPPER [None]
  - HYPOTENSION [None]
  - VOMITING [None]
